FAERS Safety Report 26129990 (Version 1)
Quarter: 2025Q4

REPORT INFORMATION
  Report Type: Spontaneous
  Country: JP (occurrence: JP)
  Receive Date: 20251208
  Receipt Date: 20251208
  Transmission Date: 20260117
  Serious: Yes (Hospitalization, Other)
  Sender: GLAXOSMITHKLINE
  Company Number: JP-GSKJP-JP2025JPN154979AA

PATIENT
  Age: 73 Year
  Sex: Male

DRUGS (2)
  1. DAPRODUSTAT [Suspect]
     Active Substance: DAPRODUSTAT
     Indication: Nephrogenic anaemia
     Dosage: UNK
  2. DARBEPOETIN ALFA [Suspect]
     Active Substance: DARBEPOETIN ALFA
     Indication: Nephrogenic anaemia
     Dosage: 60 ?G/W

REACTIONS (4)
  - Ureteric cancer [Unknown]
  - Aplasia pure red cell [Unknown]
  - Haemoglobin increased [Unknown]
  - Copper deficiency [Unknown]

NARRATIVE: CASE EVENT DATE: 20230101
